FAERS Safety Report 9445775 (Version 4)
Quarter: 2014Q2

REPORT INFORMATION
  Report Type: Report from Study
  Country: GB (occurrence: GB)
  Receive Date: 20130807
  Receipt Date: 20140423
  Transmission Date: 20141212
  Serious: Yes (Hospitalization)
  Sender: FDA-Public Use
  Company Number: GB-TEVA-418912USA

PATIENT
  Age: 77 Year
  Sex: Male
  Weight: 76.8 kg

DRUGS (24)
  1. BENDAMUSTINE [Suspect]
     Indication: B-CELL LYMPHOMA
     Route: 042
     Dates: start: 20121022
  2. BENDAMUSTINE [Suspect]
     Route: 042
     Dates: start: 20130312
  3. RITUXIMAB [Suspect]
     Indication: B-CELL LYMPHOMA
     Dosage: 500 ML/EVERY 3 WEEKS
     Route: 042
     Dates: start: 20121022
  4. RITUXIMAB [Suspect]
     Dosage: 500 ML/EVERY 3 WEEKS
     Route: 042
     Dates: start: 20130311
  5. PREDNISOLONE [Concomitant]
     Indication: LOWER RESPIRATORY TRACT INFECTION
     Dates: start: 20121017
  6. ASPIRIN [Concomitant]
     Indication: ACUTE MYOCARDIAL INFARCTION
     Dates: start: 20090120
  7. BISOPROLOL [Concomitant]
     Indication: ACUTE MYOCARDIAL INFARCTION
     Dates: start: 20090318
  8. ACYCLOVIR [Concomitant]
     Indication: PROPHYLAXIS
     Dates: start: 20121017
  9. CLARITHROMYCIN [Concomitant]
     Indication: RESPIRATORY FAILURE
     Dates: start: 20130429, end: 20130510
  10. CO-TRIMOXAZOLE [Concomitant]
     Indication: RESPIRATORY FAILURE
     Dates: start: 20130506, end: 20130507
  11. CO-TRIMOXAZOLE [Concomitant]
     Indication: LOWER RESPIRATORY TRACT INFECTION
  12. AMOXICILLIN [Concomitant]
     Indication: RESPIRATORY FAILURE
     Dates: start: 20130325, end: 20130403
  13. AMOXICILLIN [Concomitant]
     Indication: LOWER RESPIRATORY TRACT INFECTION
     Dates: start: 20130501, end: 20130505
  14. CO-AMOXICLAV [Concomitant]
     Indication: RESPIRATORY FAILURE
     Dates: start: 20130429, end: 20130505
  15. CO-AMOXICLAV [Concomitant]
     Indication: LOWER RESPIRATORY TRACT INFECTION
  16. LAXIDO [Concomitant]
     Route: 048
  17. AMBISOME [Concomitant]
     Dates: start: 20130507, end: 20130517
  18. SEPTRIN [Concomitant]
     Indication: RESPIRATORY FAILURE
     Dates: start: 20130507, end: 20130512
  19. TAMIFLU [Concomitant]
     Dates: start: 20130507, end: 20130512
  20. VORICONAZOLE [Concomitant]
     Dates: start: 20130512, end: 20130519
  21. FUROSEMIDE [Concomitant]
     Dates: start: 20130507
  22. TAZOCIN [Concomitant]
     Dates: start: 20130507, end: 20130519
  23. PLATELETS [Concomitant]
     Indication: THROMBOCYTOPENIA
     Dates: start: 20130515, end: 20130515
  24. HYDROCORTISONE [Concomitant]
     Indication: RESPIRATORY FAILURE
     Dates: start: 20130510, end: 20130517

REACTIONS (1)
  - Neutropenia [Recovered/Resolved]
